FAERS Safety Report 19485226 (Version 1)
Quarter: 2021Q3

REPORT INFORMATION
  Report Type: Spontaneous
  Country: US (occurrence: US)
  Receive Date: 20210702
  Receipt Date: 20210702
  Transmission Date: 20211014
  Serious: No
  Sender: FDA-Public Use
  Company Number: US-STRIDES ARCOLAB LIMITED-2020SP013157

PATIENT
  Age: 55 Year
  Sex: Male

DRUGS (1)
  1. MELOXICAM. [Suspect]
     Active Substance: MELOXICAM
     Indication: ARTHRALGIA
     Dosage: 15 MILLIGRAM DAILY
     Route: 065

REACTIONS (3)
  - Gynaecomastia [Recovered/Resolved]
  - Musculoskeletal chest pain [Recovered/Resolved]
  - Nipple pain [Recovered/Resolved]
